FAERS Safety Report 9637460 (Version 2)
Quarter: 2013Q4

REPORT INFORMATION
  Report Type: Spontaneous
  Country: US (occurrence: US)
  Receive Date: 20131022
  Receipt Date: 20131203
  Transmission Date: 20140711
  Serious: Yes (Other)
  Sender: FDA-Public Use
  Company Number: US-BAYER-2013-124697

PATIENT
  Age: 29 Year
  Sex: Female
  Weight: 65.32 kg

DRUGS (3)
  1. MIRENA [Suspect]
     Indication: CONTRACEPTION
     Dosage: 20 MCG/24HR, CONT
     Route: 015
     Dates: start: 201301, end: 2013
  2. PRENATAL VITAMINS [VIT C,B5,B12,D2,B3,B6,RETINOL PALMIT,B2,B1 MONO [Concomitant]
     Indication: PREGNANCY
     Dosage: 1 DF, QD
     Dates: start: 2010
  3. ACYCLOVIR [ACICLOVIR] [Concomitant]
     Indication: HERPES SIMPLEX
     Dosage: 800 MG, QD

REACTIONS (5)
  - Genital haemorrhage [Recovered/Resolved]
  - Hormone level abnormal [Recovered/Resolved]
  - Device expulsion [Recovered/Resolved]
  - Mood swings [Recovered/Resolved]
  - Discomfort [Recovered/Resolved]
